FAERS Safety Report 8226441-2 (Version None)
Quarter: 2012Q1

REPORT INFORMATION
  Report Type: 
  Country: None (occurrence: None)
  Receive Date: 20120321
  Receipt Date: 20120312
  Transmission Date: 20120608
  Serious: Yes (Hospitalization)
  Sender: FDA-Public Use
  Company Number: JP-ASTRAZENECA-2012SE18101

PATIENT
  Age: 78 Year
  Sex: Female
  Weight: 52 kg

DRUGS (17)
  1. PREDNISOLONE [Concomitant]
     Route: 048
  2. ALFAROL [Concomitant]
     Route: 048
  3. PRANOPROFEN [Concomitant]
     Dosage: OPTIMAL DOSE/DAY
     Route: 047
  4. SYMBICORT [Suspect]
     Indication: ASTHMA
     Dosage: TWO TIMES A DAY
     Route: 055
  5. UNKNOWNDRUG [Suspect]
     Route: 048
     Dates: start: 20111101, end: 20111115
  6. ZOLPIDEM [Suspect]
     Dosage: DOSE UNKNOWN
     Route: 048
  7. MUCOSOLVAN L [Concomitant]
     Route: 048
  8. OLMESARTAN MEDOXOMIL [Concomitant]
     Route: 048
  9. MONTELUKAST SODIUM [Concomitant]
     Route: 048
  10. AMLODIPINE [Concomitant]
     Route: 048
  11. PRAVASTAN [Concomitant]
     Route: 048
  12. TOLTERODINE TARTRATE [Concomitant]
     Dosage: DOSE UNKNOWN
     Route: 048
     Dates: end: 20111031
  13. MAGNESIUM SULFATE [Concomitant]
     Route: 048
  14. UNKNOWNDRUG [Suspect]
     Route: 048
  15. ERYTHROCIN LACTOBIONATE [Concomitant]
     Route: 048
  16. RABEPRAZOLE SODIUM [Concomitant]
     Route: 048
  17. SOFTEAR [Concomitant]
     Dosage: OPTIMAL DOSE/DAY
     Route: 047

REACTIONS (2)
  - AORTIC DISSECTION [None]
  - ARRHYTHMIA [None]
